FAERS Safety Report 4751762-5 (Version None)
Quarter: 2005Q3

REPORT INFORMATION
  Report Type: 
  Country: None (occurrence: None)
  Receive Date: 20050822
  Receipt Date: 20050809
  Transmission Date: 20060218
  Serious: Yes (Hospitalization, Other)
  Sender: FDA-Public Use
  Company Number: 2005113882

PATIENT
  Age: 38 Year
  Sex: Male
  Weight: 78 kg

DRUGS (4)
  1. PREGABALIN (PREGABALIN) [Suspect]
     Indication: EPILEPSY
     Dosage: 600 MG, ORAL
     Route: 048
     Dates: start: 20050310, end: 20050504
  2. NEOSIDANTOINA (PHENYTOIN SODIUM) [Concomitant]
  3. LEVETIRACETAM [Concomitant]
  4. TOPIRAMATE [Concomitant]

REACTIONS (1)
  - STATUS EPILEPTICUS [None]
